FAERS Safety Report 6479248-0 (Version None)
Quarter: 2009Q4

REPORT INFORMATION
  Report Type: 
  Country: None (occurrence: None)
  Receive Date: 20091207
  Receipt Date: 20090810
  Transmission Date: 20100525
  Serious: No
  Sender: FDA-Public Use
  Company Number: US-AMGEN-KDL334455

PATIENT
  Sex: Female

DRUGS (6)
  1. ENBREL [Suspect]
     Indication: RHEUMATOID ARTHRITIS
     Route: 058
     Dates: start: 20020601
  2. LIPITOR [Concomitant]
     Route: 048
  3. ACTONEL [Concomitant]
     Route: 048
  4. LISINOPRIL [Concomitant]
     Route: 048
  5. FISH OIL [Concomitant]
     Route: 048
  6. MUCINEX [Concomitant]

REACTIONS (15)
  - ARTHRALGIA [None]
  - CELLULITIS [None]
  - CHILLS [None]
  - CONTUSION [None]
  - COUGH [None]
  - DIZZINESS [None]
  - DYSPNOEA [None]
  - ESSENTIAL HYPERTENSION [None]
  - FALL [None]
  - HYPOTHYROIDISM [None]
  - JOINT SWELLING [None]
  - OSTEOARTHRITIS [None]
  - RHEUMATOID ARTHRITIS [None]
  - SINUS TACHYCARDIA [None]
  - WEIGHT BEARING DIFFICULTY [None]
